FAERS Safety Report 8772716 (Version 1)
Quarter: 2012Q4

REPORT INFORMATION
  Report Type: 
  Country: US (occurrence: US)
  Receive Date: 20120905
  Receipt Date: 20120905
  Transmission Date: 20130627
  Serious: No
  Sender: FDA-Public Use
  Company Number: US-B.I. PHARMACEUTICALS,INC./RIDGEFIELD-2012-BP-21161BP

PATIENT
  Sex: Male
  Weight: 91 kg

DRUGS (6)
  1. SPIRIVA [Suspect]
     Indication: CHRONIC OBSTRUCTIVE PULMONARY DISEASE
     Dosage: 18 mcg
     Route: 055
     Dates: start: 2007
  2. ZETIA [Concomitant]
     Indication: BLOOD CHOLESTEROL INCREASED
     Dosage: 10 mg
     Route: 048
     Dates: start: 2003
  3. AMARYL [Concomitant]
     Indication: DIABETES MELLITUS
     Dosage: 12 mg
     Route: 048
     Dates: start: 2005
  4. METFORMIN [Concomitant]
     Indication: DIABETES MELLITUS
     Dosage: 1500 mg
     Route: 048
     Dates: start: 2009
  5. JANUVIA [Concomitant]
     Indication: DIABETES MELLITUS
     Dosage: 100 mg
     Route: 048
     Dates: start: 2006
  6. LIPITOR [Concomitant]
     Indication: BLOOD CHOLESTEROL INCREASED
     Dosage: 80 mg
     Route: 048
     Dates: start: 2003

REACTIONS (1)
  - Eyelids pruritus [Not Recovered/Not Resolved]
